FAERS Safety Report 6335858-2 (Version None)
Quarter: 2009Q3

REPORT INFORMATION
  Report Type: 
  Country: None (occurrence: None)
  Receive Date: 20090828
  Receipt Date: 20090818
  Transmission Date: 20100115
  Serious: Yes (Life-Threatening, Hospitalization, Other)
  Sender: FDA-Public Use
  Company Number: MC200900232

PATIENT
  Age: 54 Year
  Sex: Male

DRUGS (12)
  1. ANGIOMAX         , ANGIOX (BIVALIRUDIN) INJECTION [Suspect]
     Indication: STENT PLACEMENT
     Dosage: 60 MG, BOLUS@ 14:34, INTRAVENOUS, 140  MG, HR @ 14:35, INTRAVENOUS, 3 MG, BOLUS @ 15:03, INTRAVENOUS
     Route: 042
  2. ASPIRIN [Suspect]
  3. PLAVIX [Concomitant]
  4. METOPROLOL TARTRATE [Concomitant]
  5. LIPITOR [Concomitant]
  6. RAMIPRIL [Concomitant]
  7. FOLIC ACID [Concomitant]
  8. METHOTREXATE [Concomitant]
  9. APO-HYDROXYQUINE (HYDROXYCHLOROQUINE SULFATE) [Concomitant]
  10. XYLOCAINE [Concomitant]
  11. FENTANYL-100 [Concomitant]
  12. VERSED [Concomitant]

REACTIONS (7)
  - BRADYCARDIA [None]
  - CORONARY ARTERY PERFORATION [None]
  - HYPOTENSION [None]
  - PERICARDIAL EFFUSION [None]
  - PERICARDIAL HAEMORRHAGE [None]
  - PROCEDURAL COMPLICATION [None]
  - THROMBOSIS [None]
